FAERS Safety Report 17930484 (Version 2)
Quarter: 2020Q3

REPORT INFORMATION
  Report Type: Report from Study
  Country: GB (occurrence: GB)
  Receive Date: 20200623
  Receipt Date: 20200703
  Transmission Date: 20201103
  Serious: Yes (Other)
  Sender: FDA-Public Use
  Company Number: GB-ASPEN-GLO2020GB006097

PATIENT
  Age: 58 Year
  Sex: Male
  Weight: 87 kg

DRUGS (10)
  1. ISATUXIMAB [Suspect]
     Active Substance: ISATUXIMAB
     Dosage: 880 MG, QCY, CYCLICAL
     Route: 065
     Dates: start: 20200611, end: 20200611
  2. POMALIDOMIDE [Suspect]
     Active Substance: POMALIDOMIDE
     Indication: PLASMA CELL MYELOMA
     Dosage: 4 MG, QCY, CYCLICAL
     Route: 065
     Dates: start: 20200521
  3. DEXAMETHASONE. [Suspect]
     Active Substance: DEXAMETHASONE
     Indication: PRODUCT USED FOR UNKNOWN INDICATION
     Dosage: UNK UNK, QCY, CYCLICAL
     Route: 065
     Dates: start: 20200521, end: 20200521
  4. ISATUXIMAB [Suspect]
     Active Substance: ISATUXIMAB
     Indication: PLASMA CELL MYELOMA
     Dosage: 880 MG, QCY, CYCLICAL
     Route: 065
     Dates: start: 20200521, end: 20200521
  5. COTRIMOXAZOLE [Concomitant]
     Active Substance: SULFAMETHOXAZOLE\TRIMETHOPRIM
     Indication: INFECTION PROPHYLAXIS
     Dosage: 960 MG, QD
     Route: 065
  6. AMITRIPTYLINE [Concomitant]
     Active Substance: AMITRIPTYLINE
     Indication: PAIN
     Dosage: 10 MG, QD
     Route: 065
  7. RIVAROXABAN [Concomitant]
     Active Substance: RIVAROXABAN
     Indication: THROMBOSIS PROPHYLAXIS
     Dosage: 10 MG, QD
     Route: 065
     Dates: start: 20200521
  8. ACICLOVIR [Concomitant]
     Active Substance: ACYCLOVIR
     Indication: INFECTION PROPHYLAXIS
     Dosage: 400 MG, BID
     Route: 065
  9. POMALIDOMIDE [Suspect]
     Active Substance: POMALIDOMIDE
     Dosage: 4 UNK
     Route: 065
     Dates: start: 20200611
  10. ALLOPURINOL. [Concomitant]
     Active Substance: ALLOPURINOL
     Indication: NEOPLASM PROPHYLAXIS
     Dosage: 300 MG, QD
     Route: 065
     Dates: start: 20200521

REACTIONS (6)
  - Heart rate irregular [Unknown]
  - Atrial fibrillation [Unknown]
  - Neutropenia [Unknown]
  - Thrombocytopenia [Unknown]
  - Palpitations [Recovered/Resolved]
  - Alanine aminotransferase increased [Unknown]

NARRATIVE: CASE EVENT DATE: 20200523
